FAERS Safety Report 6384255-2 (Version None)
Quarter: 2009Q4

REPORT INFORMATION
  Report Type: 
  Country: None (occurrence: None)
  Receive Date: 20091001
  Receipt Date: 20090922
  Transmission Date: 20100525
  Serious: Yes (Other)
  Sender: FDA-Public Use
  Company Number: US-PFIZER INC-2009272986

PATIENT
  Sex: Female
  Weight: 61.224 kg

DRUGS (1)
  1. XALATAN [Suspect]
     Indication: GLAUCOMA
     Dates: end: 20080101

REACTIONS (1)
  - INTRAOCULAR PRESSURE INCREASED [None]
